FAERS Safety Report 10397471 (Version 1)
Quarter: 2014Q3

REPORT INFORMATION
  Report Type: Report from Study
  Country: CN (occurrence: CN)
  Receive Date: 20140820
  Receipt Date: 20140820
  Transmission Date: 20150326
  Serious: Yes (Other)
  Sender: FDA-Public Use
  Company Number: CN-BAXTER-2014BAX048062

PATIENT

DRUGS (5)
  1. UROMITEXAN 400 MG/ 4ML [Suspect]
     Active Substance: MESNA
     Indication: DRUG TOXICITY PROPHYLAXIS
     Dosage: TOTAL DOSE OF 160%, 4 DOSES GIVEN AT A 3-HOUR INTERVAL
     Route: 065
  2. TOPOTECAN [Suspect]
     Active Substance: TOPOTECAN\TOPOTECAN HYDROCHLORIDE
     Indication: NEUROBLASTOMA
     Dosage: OVER 1 HOUR RESPECTIVELY
     Route: 065
  3. 13-CIS-RETINOIC ACID [Suspect]
     Active Substance: ISOTRETINOIN
     Indication: NEUROBLASTOMA
     Dosage: DIVIDED INTO TWO DOSES
     Route: 048
  4. G-CSF [Suspect]
     Active Substance: FILGRASTIM
     Indication: BONE MARROW FAILURE
     Route: 065
  5. ENDOXAN 1G [Suspect]
     Active Substance: CYCLOPHOSPHAMIDE
     Indication: NEUROBLASTOMA
     Dosage: OVER 4 HOURS
     Route: 042

REACTIONS (1)
  - Disease recurrence [Unknown]
